FAERS Safety Report 8518911-4 (Version None)
Quarter: 2012Q3

REPORT INFORMATION
  Report Type: 
  Country: None (occurrence: None)
  Receive Date: 20120718
  Receipt Date: 20120717
  Transmission Date: 20120928
  Serious: Yes (Other)
  Sender: FDA-Public Use
  Company Number: US-GLAXOSMITHKLINE-A0966560A

PATIENT
  Age: 58 Year
  Sex: Male

DRUGS (5)
  1. ENALAPRIL MALEATE [Concomitant]
  2. ADVAIR DISKUS 100/50 [Suspect]
     Indication: ASTHMA
     Dosage: 1PUFF TWICE PER DAY
     Route: 055
     Dates: start: 20070101
  3. ZETIA [Concomitant]
  4. PRAVACHOL [Concomitant]
  5. LORATADINE [Concomitant]

REACTIONS (2)
  - ASTHMA [None]
  - DYSPNOEA [None]
